FAERS Safety Report 8956287 (Version 1)
Quarter: 2012Q4

REPORT INFORMATION
  Report Type: 
  Country: GB (occurrence: GB)
  Receive Date: 20121210
  Receipt Date: 20121210
  Transmission Date: 20130627
  Serious: Yes (Hospitalization)
  Sender: FDA-Public Use
  Company Number: GB-NOVOPROD-365523

PATIENT
  Age: 37 Year
  Sex: Male

DRUGS (3)
  1. VICTOZA [Suspect]
     Indication: DIABETES MELLITUS
     Dosage: UNK
     Route: 065
     Dates: start: 201207, end: 20121001
  2. VICTOZA [Suspect]
     Dosage: UNK
     Route: 065
     Dates: start: 20121107
  3. GLUCOPHAGE [Concomitant]

REACTIONS (1)
  - Inflammatory bowel disease [Unknown]
